FAERS Safety Report 16363916 (Version 1)
Quarter: 2019Q2

REPORT INFORMATION
  Report Type: Report from Study
  Country: ES (occurrence: ES)
  Receive Date: 20190528
  Receipt Date: 20190528
  Transmission Date: 20190711
  Serious: Yes (Other)
  Sender: FDA-Public Use
  Company Number: ES-PFIZER INC-2019220322

PATIENT
  Age: 7 Month
  Sex: Male
  Weight: 10 kg

DRUGS (3)
  1. CYTARABINE. [Suspect]
     Active Substance: CYTARABINE
     Indication: ACUTE MYELOID LEUKAEMIA
     Dosage: UNK UNK, AS NEEDED
     Route: 042
     Dates: start: 20180324, end: 20180324
  2. RASBURICASE [Suspect]
     Active Substance: RASBURICASE
     Dosage: 1.5 MG, UNK
     Route: 042
     Dates: start: 20180324, end: 20180324
  3. CEFEPIMA [CEFEPIME] [Suspect]
     Active Substance: CEFEPIME HYDROCHLORIDE
     Dosage: 500 MG, (EVERY 3 HOURS)
     Route: 042
     Dates: start: 20180324, end: 20180324

REACTIONS (1)
  - Hepatitis acute [Recovered/Resolved]

NARRATIVE: CASE EVENT DATE: 20180329
